FAERS Safety Report 9663633 (Version 1)
Quarter: 2013Q4

REPORT INFORMATION
  Report Type: Spontaneous
  Country: US (occurrence: US)
  Receive Date: 20131101
  Receipt Date: 20131101
  Transmission Date: 20140711
  Serious: No
  Sender: FDA-Public Use
  Company Number: US-PFIZER INC-2013308927

PATIENT
  Age: 64 Year
  Sex: Male
  Weight: 92.97 kg

DRUGS (4)
  1. LIPITOR [Suspect]
     Indication: HYPERLIPIDAEMIA
     Dosage: 40 MG, 1X/DAY
     Dates: start: 20130416, end: 20130829
  2. AMITRIPTYLINE [Concomitant]
     Dosage: 25 MG, 1X/DAY
  3. AMBIEN [Concomitant]
     Indication: INSOMNIA
     Dosage: 5 MG, AS NEEDED AT BEDTIME
     Route: 048
  4. MELOXICAM [Concomitant]
     Dosage: 50 MG, 1X/DAY

REACTIONS (1)
  - Bursitis [Recovering/Resolving]
